FAERS Safety Report 12400941 (Version 2)
Quarter: 2016Q2

REPORT INFORMATION
  Report Type: Spontaneous
  Country: US (occurrence: US)
  Receive Date: 20160525
  Receipt Date: 20160525
  Transmission Date: 20160815
  Serious: Yes (Other)
  Sender: FDA-Public Use
  Company Number: US-SA-2015SA110766

PATIENT
  Age: 36 Year
  Sex: Male

DRUGS (4)
  1. SOLOSTAR [Concomitant]
     Active Substance: DEVICE
  2. LANTUS [Suspect]
     Active Substance: INSULIN GLARGINE
     Route: 065
  3. NOVOLOG [Concomitant]
     Active Substance: INSULIN ASPART
     Indication: DIABETES MELLITUS MANAGEMENT
     Dosage: OVER 25 UNITS A DAY PROBABLY
  4. LANTUS SOLOSTAR [Suspect]
     Active Substance: INSULIN GLARGINE
     Indication: TYPE 1 DIABETES MELLITUS
     Dosage: DOSE:10 UNIT(S)
     Route: 065

REACTIONS (2)
  - Blood glucose decreased [Unknown]
  - Hypoglycaemic seizure [Unknown]
